FAERS Safety Report 17579996 (Version 2)
Quarter: 2020Q2

REPORT INFORMATION
  Report Type: Spontaneous
  Country: JP (occurrence: JP)
  Receive Date: 20200325
  Receipt Date: 20200402
  Transmission Date: 20200713
  Serious: Yes (Other)
  Sender: FDA-Public Use
  Company Number: JP-JNJFOC-20200328016

PATIENT
  Age: 56 Year
  Sex: Female

DRUGS (2)
  1. TRAMADOL HYDROCHLORIDE. [Suspect]
     Active Substance: TRAMADOL HYDROCHLORIDE
     Indication: PAIN
     Dosage: 1 TABLET AT NIGHT
     Route: 048
  2. TRAMCET [Suspect]
     Active Substance: ACETAMINOPHEN\TRAMADOL
     Indication: PAIN
     Dosage: 1 TABLET EACH IN THE MORNING AND AT NIGHT
     Route: 048

REACTIONS (2)
  - Therapeutic response decreased [Unknown]
  - Loss of consciousness [Recovered/Resolved]
